FAERS Safety Report 7403253-0 (Version None)
Quarter: 2011Q2

REPORT INFORMATION
  Report Type: 
  Country: None (occurrence: None)
  Receive Date: 20110408
  Receipt Date: 20110328
  Transmission Date: 20111010
  Serious: Yes (Other)
  Sender: FDA-Public Use
  Company Number: US-JNJFOC-20110312135

PATIENT
  Sex: Male
  Weight: 54.43 kg

DRUGS (2)
  1. REMICADE [Suspect]
     Indication: UVEITIS
     Dosage: WEEK 2
     Route: 042
  2. REMICADE [Suspect]
     Dosage: WEEK 0
     Route: 042

REACTIONS (1)
  - AGEUSIA [None]
